FAERS Safety Report 6134144-3 (Version None)
Quarter: 2009Q1

REPORT INFORMATION
  Report Type: 
  Country: None (occurrence: None)
  Receive Date: 20090326
  Receipt Date: 20090317
  Transmission Date: 20090719
  Serious: Yes (Hospitalization)
  Sender: FDA-Public Use
  Company Number: CO-SANOFI-SYNTHELABO-A01200902947

PATIENT
  Sex: Male

DRUGS (6)
  1. LOVASTATIN [Concomitant]
     Indication: PROPHYLAXIS
     Route: 048
     Dates: start: 20090302
  2. SALICYLIC ACID [Concomitant]
     Indication: PROPHYLAXIS
     Route: 048
     Dates: start: 20090302
  3. METOPROLOL TARTRATE [Concomitant]
     Indication: PROPHYLAXIS
     Route: 048
     Dates: start: 20090302
  4. PLAVIX [Suspect]
     Indication: STENT PLACEMENT
     Dosage: 600 MG ONCE FOLLOWED BY 75 MG DAILY
     Route: 048
     Dates: start: 20090302
  5. PLAVIX [Suspect]
     Indication: PROPHYLAXIS
     Dosage: 600 MG ONCE FOLLOWED BY 75 MG DAILY
     Route: 048
     Dates: start: 20090302
  6. PLAVIX [Suspect]
     Indication: CORONARY ARTERY DISEASE
     Dosage: 600 MG ONCE FOLLOWED BY 75 MG DAILY
     Route: 048
     Dates: start: 20090302

REACTIONS (3)
  - DRUG INEFFECTIVE [None]
  - IN-STENT CORONARY ARTERY RESTENOSIS [None]
  - OVERDOSE [None]
